FAERS Safety Report 11139844 (Version 3)
Quarter: 2015Q4

REPORT INFORMATION
  Report Type: Spontaneous
  Country: US (occurrence: US)
  Receive Date: 20150527
  Receipt Date: 20151028
  Transmission Date: 20160304
  Serious: Yes (Hospitalization)
  Sender: FDA-Public Use
  Company Number: US-BAYER-2015-245290

PATIENT
  Age: 79 Year
  Sex: Male

DRUGS (4)
  1. XOFIGO [Suspect]
     Active Substance: RADIUM RA-223 DICHLORIDE
     Indication: METASTASES TO BONE
     Dosage: 114.1 MCI, QD
     Route: 042
     Dates: start: 20150205, end: 20150205
  2. XOFIGO [Suspect]
     Active Substance: RADIUM RA-223 DICHLORIDE
     Indication: PROSTATE CANCER STAGE IV
     Dosage: 110.0 MCI, QD
     Route: 042
     Dates: start: 20150416, end: 20150416
  3. XOFIGO [Suspect]
     Active Substance: RADIUM RA-223 DICHLORIDE
     Indication: PROSTATE CANCER STAGE IV
     Dosage: 111 MCI, QD
     Route: 042
     Dates: start: 20150109, end: 20150109
  4. XOFIGO [Suspect]
     Active Substance: RADIUM RA-223 DICHLORIDE
     Indication: PROSTATE CANCER STAGE IV
     Dosage: 113 MCI, QD
     Route: 042
     Dates: start: 20150319, end: 20150319

REACTIONS (7)
  - Asthenia [None]
  - Transient ischaemic attack [None]
  - Urinary tract infection [None]
  - Decreased appetite [None]
  - Pain [None]
  - Aphasia [None]
  - Hypertension [None]
